FAERS Safety Report 13762982 (Version 1)
Quarter: 2017Q3

REPORT INFORMATION
  Report Type: Other
  Country: ZA (occurrence: ZA)
  Receive Date: 20170718
  Receipt Date: 20170718
  Transmission Date: 20171127
  Serious: Yes (Other)
  Sender: FDA-Public Use
  Company Number: ZA-ALSI-201700203

PATIENT
  Age: 58 Year
  Sex: Female

DRUGS (5)
  1. OXYGEN. [Concomitant]
     Active Substance: OXYGEN
  2. SUXAMETHONIUM [Concomitant]
     Active Substance: SUCCINYLCHOLINE
  3. CARBON DIOXIDE. [Suspect]
     Active Substance: CARBON DIOXIDE
     Indication: WRONG DRUG ADMINISTERED
     Route: 055
  4. AIR. [Suspect]
     Active Substance: AIR
     Route: 055
  5. PROPOFOL. [Concomitant]
     Active Substance: PROPOFOL

REACTIONS (4)
  - Device connection issue [Recovered/Resolved]
  - Wrong drug administered [Recovered/Resolved]
  - Acidosis [Recovered/Resolved]
  - PCO2 increased [Recovered/Resolved]
